FAERS Safety Report 5084515-1 (Version None)
Quarter: 2006Q3

REPORT INFORMATION
  Report Type: 
  Country: None (occurrence: None)
  Receive Date: 20060818
  Receipt Date: 20060818
  Transmission Date: 20061208
  Serious: Yes (Life-Threatening, Hospitalization)
  Sender: FDA-Public Use
  Company Number: None

PATIENT
  Age: 36 Year
  Sex: Female
  Weight: 58.9676 kg

DRUGS (1)
  1. ADVAIR DISKUS 100/50 [Suspect]
     Indication: BRONCHITIS
     Dosage: 1 PUFF 2 X DAILY INHAL
     Route: 055
     Dates: start: 20060426, end: 20060816

REACTIONS (4)
  - ASTHMA [None]
  - HYPERHIDROSIS [None]
  - MALAISE [None]
  - RESPIRATORY DISTRESS [None]
